FAERS Safety Report 22071652 (Version 1)
Quarter: 2023Q1

REPORT INFORMATION
  Report Type: Spontaneous
  Country: None (occurrence: FR)
  Receive Date: 20230307
  Receipt Date: 20230307
  Transmission Date: 20230418
  Serious: Yes (Hospitalization)
  Sender: FDA-Public Use
  Company Number: FR-B.Braun Medical Inc.-2138804

PATIENT
  Age: 7 Year
  Sex: Male
  Weight: 25.3 kg

DRUGS (2)
  1. METRONIDAZOLE [Suspect]
     Active Substance: METRONIDAZOLE
     Indication: Brain empyema
     Route: 042
  2. CEFOTAXIME [Suspect]
     Active Substance: CEFOTAXIME SODIUM

REACTIONS (1)
  - Agranulocytosis [Unknown]
